FAERS Safety Report 11539752 (Version 1)
Quarter: 2015Q3

REPORT INFORMATION
  Report Type: Spontaneous
  Country: US (occurrence: None)
  Receive Date: 20150922
  Receipt Date: 20150922
  Transmission Date: 20151125
  Serious: Yes (Hospitalization)
  Sender: FDA-Public Use
  Company Number: None

PATIENT
  Age: 70 Year
  Sex: Female
  Weight: 94.55 kg

DRUGS (3)
  1. METFORMIN HYDROCHLORIDE. [Suspect]
     Active Substance: METFORMIN HYDROCHLORIDE
     Dates: end: 20150519
  2. TAXOL [Concomitant]
     Active Substance: PACLITAXEL
     Dates: end: 20150512
  3. CARBOPLATIN. [Suspect]
     Active Substance: CARBOPLATIN
     Dates: end: 20150817

REACTIONS (6)
  - Hydronephrosis [None]
  - Pelvic mass [None]
  - Urosepsis [None]
  - Endometrial cancer recurrent [None]
  - Neuropathy peripheral [None]
  - Urinary tract infection [None]

NARRATIVE: CASE EVENT DATE: 20150903
